FAERS Safety Report 9206631 (Version 2)
Quarter: 2013Q2

REPORT INFORMATION
  Report Type: Spontaneous
  Country: AU (occurrence: AU)
  Receive Date: 20130403
  Receipt Date: 20130513
  Transmission Date: 20140414
  Serious: Yes (Hospitalization)
  Sender: FDA-Public Use
  Company Number: AU-PFIZER INC-2013101051

PATIENT
  Age: 64 Year
  Sex: Male
  Weight: 147 kg

DRUGS (20)
  1. INSPRA [Suspect]
     Indication: CARDIAC FAILURE
     Dosage: 50 MG, 1X/DAY
     Dates: start: 20110227, end: 20130101
  2. METFORMIN HCL [Suspect]
     Dosage: UNK
     Dates: end: 20130101
  3. CARVEDILOL [Suspect]
     Dosage: 25 MG, 2X/DAY
     Route: 048
  4. CANDESARTAN CILEXETIL [Suspect]
     Dosage: UNK
     Dates: end: 20130101
  5. GLICLAZIDE [Suspect]
     Dosage: UNK
     Dates: end: 20130101
  6. FRUSEMIDE [Suspect]
     Dosage: UNK
  7. PERHEXILINE [Suspect]
     Dosage: 200MG MANE 100MG NOCTE
     Route: 048
  8. SOTALOL [Suspect]
     Dosage: 240MG MANE 160MG NOCTE
     Route: 048
  9. COPLAVIX [Concomitant]
     Dosage: 75/100MG
     Route: 048
  10. IVABRADINE [Concomitant]
     Dosage: 7.5 MG, 1X/DAY
     Route: 048
  11. PRAZOSIN [Concomitant]
     Dosage: 5 MG, 2X/DAY
     Route: 048
  12. DIGOXIN [Concomitant]
     Dosage: 62.5 MG, 1X/DAY MANE
     Route: 048
  13. LANTUS [Concomitant]
     Dosage: 95 IU, 1X/DAY NOCTE
     Route: 058
  14. NOVORAPID [Concomitant]
     Dosage: 35UNITS MANE, 45 UNITS NOCTE
     Route: 058
  15. EZETIMIBE [Concomitant]
     Dosage: 10 MG, 1X/DAY
     Route: 048
  16. ROSUVASTATIN [Concomitant]
     Dosage: 40 MG, 1X/DAY NOCTE
     Route: 048
  17. HYDRALAZINE [Concomitant]
     Indication: CARDIAC FAILURE
     Dosage: 50MG MANE 100MG NOCTE
     Route: 048
     Dates: start: 2010
  18. QUINAPRIL [Concomitant]
     Indication: CARDIAC FAILURE
     Dosage: 20 MG, 1X/DAY NOCTE
     Route: 048
     Dates: start: 2010
  19. NICORANDIL [Concomitant]
     Indication: ANGINA PECTORIS
     Dosage: 20 MG, 2X/DAY
     Route: 048
     Dates: start: 2010
  20. TIOTROPIUM [Concomitant]
     Dosage: 18 UG, 1X/DAY
     Route: 055

REACTIONS (7)
  - Renal failure acute [Recovered/Resolved]
  - Hypotension [Recovered/Resolved]
  - Presyncope [Recovered/Resolved]
  - Blood creatinine increased [Recovered/Resolved]
  - Chest discomfort [Recovered/Resolved]
  - Glycosylated haemoglobin increased [Unknown]
  - Dyspnoea [Recovered/Resolved]
